FAERS Safety Report 19762706 (Version 4)
Quarter: 2022Q1

REPORT INFORMATION
  Report Type: Report from Study
  Country: US (occurrence: US)
  Receive Date: 20210830
  Receipt Date: 20220112
  Transmission Date: 20220423
  Serious: No
  Sender: FDA-Public Use
  Company Number: NVSC2021US192852

PATIENT
  Sex: Male

DRUGS (2)
  1. PROMACTA [Suspect]
     Active Substance: ELTROMBOPAG OLAMINE
     Indication: Product used for unknown indication
     Dosage: UNK
     Route: 048
  2. PROMACTA [Suspect]
     Active Substance: ELTROMBOPAG OLAMINE
     Route: 048

REACTIONS (7)
  - Rhinorrhoea [Unknown]
  - Platelet count decreased [Unknown]
  - Dizziness [Unknown]
  - Platelet count increased [Unknown]
  - Product use issue [Unknown]
  - Full blood count decreased [Unknown]
  - Inappropriate schedule of product administration [Unknown]
